FAERS Safety Report 14928826 (Version 1)
Quarter: 2018Q2

REPORT INFORMATION
  Report Type: Spontaneous
  Country: JP (occurrence: JP)
  Receive Date: 20180523
  Receipt Date: 20180523
  Transmission Date: 20180711
  Serious: Yes (Other)
  Sender: FDA-Public Use
  Company Number: JP-PFIZER INC-2018203234

PATIENT
  Age: 41 Year
  Sex: Female

DRUGS (2)
  1. SOLANAX [Suspect]
     Active Substance: ALPRAZOLAM
     Dosage: 0.4 MG, UNK
     Dates: start: 201208, end: 201210
  2. JZOLOFT 25MG [Suspect]
     Active Substance: SERTRALINE HYDROCHLORIDE
     Dosage: 25 MG, UNK
     Dates: start: 201208, end: 201210

REACTIONS (1)
  - Drug eruption [Unknown]
